FAERS Safety Report 17168487 (Version 1)
Quarter: 2019Q4

REPORT INFORMATION
  Report Type: Spontaneous
  Country: US (occurrence: US)
  Receive Date: 20191125
  Receipt Date: 20191125
  Transmission Date: 20200122
  Serious: No
  Sender: FDA-Public Use
  Company Number: None

PATIENT
  Age: 58 Year
  Sex: Male

DRUGS (1)
  1. ABACAVIR SULFATE -LAMIVUDINE TAB 600-300MG [Suspect]
     Active Substance: ABACAVIR SULFATE\LAMIVUDINE
     Route: 048
     Dates: start: 201901, end: 201911

REACTIONS (3)
  - Insomnia [None]
  - Nightmare [None]
  - Therapy cessation [None]

NARRATIVE: CASE EVENT DATE: 20191101
